FAERS Safety Report 19645044 (Version 1)
Quarter: 2021Q3

REPORT INFORMATION
  Report Type: Report from Study
  Country: CA (occurrence: CA)
  Receive Date: 20210802
  Receipt Date: 20210802
  Transmission Date: 20211014
  Serious: Yes (Hospitalization)
  Sender: FDA-Public Use
  Company Number: CA-JNJFOC-20210664049

PATIENT
  Age: 28 Year
  Sex: Female
  Weight: 74 kg

DRUGS (1)
  1. REMICADE [Suspect]
     Active Substance: INFLIXIMAB
     Indication: CROHN^S DISEASE
     Dosage: ALSO REPORTED AS 5 MG/KG. RECEIVED INFUSION ON 02/JUL/2021.
     Route: 042
     Dates: start: 20210616

REACTIONS (5)
  - Arthralgia [Recovering/Resolving]
  - Vomiting [Unknown]
  - Nausea [Not Recovered/Not Resolved]
  - Influenza like illness [Recovering/Resolving]
  - Clostridium difficile infection [Recovering/Resolving]

NARRATIVE: CASE EVENT DATE: 2021
